FAERS Safety Report 24880637 (Version 1)
Quarter: 2025Q1

REPORT INFORMATION
  Report Type: Spontaneous
  Country: FI (occurrence: FI)
  Receive Date: 20250123
  Receipt Date: 20250123
  Transmission Date: 20250409
  Serious: Yes (Hospitalization, Other)
  Sender: ORGANON
  Company Number: FI-Covis Pharma Europe B.V.-2025COV00023

PATIENT
  Age: 54 Year
  Sex: Female

DRUGS (16)
  1. SINGULAIR [Suspect]
     Active Substance: MONTELUKAST SODIUM
     Dosage: 10 MILLIGRAM, QD (10 MILLIGRAM X 1)
     Dates: start: 2013
  2. MONTELUKAST SODIUM [Suspect]
     Active Substance: MONTELUKAST SODIUM
     Dosage: 10 MILLIGRAM, QD (MONTELUKAST 10 MGX1)
  3. ALVESCO [Suspect]
     Active Substance: CICLESONIDE
     Route: 065
     Dates: start: 2013
  4. ALVESCO [Suspect]
     Active Substance: CICLESONIDE
     Dosage: 160 MICROGRAM ( 2X1 )
     Route: 065
  5. PREDNISOLONE [Suspect]
     Active Substance: PREDNISOLONE
  6. PREDNISOLONE [Suspect]
     Active Substance: PREDNISOLONE
  7. SERETIDE [Suspect]
     Active Substance: FLUTICASONE PROPIONATE\SALMETEROL XINAFOATE
     Dosage: 4 DOSAGE FORM, BID, SERETIDE 25/250 4X2
     Dates: start: 2013
  8. ALBUTEROL SULFATE [Suspect]
     Active Substance: ALBUTEROL SULFATE
     Dates: start: 2013
  9. THEOPHYLLINE [Suspect]
     Active Substance: THEOPHYLLINE
     Dates: start: 2013
  10. INDACATEROL [Suspect]
     Active Substance: INDACATEROL
     Dates: start: 2013
  11. ROFLUMILAST [Suspect]
     Active Substance: ROFLUMILAST
     Dates: start: 2016
  12. FLUTICASONE FUROATE\VILANTEROL TRIFENATATE [Suspect]
     Active Substance: FLUTICASONE FUROATE\VILANTEROL TRIFENATATE
     Dosage: 1 DOSAGE FORM, QD (RELVAR 184/22 1X1?)
  13. ROFLUMILAST [Suspect]
     Active Substance: ROFLUMILAST
     Dosage: 500 MILLIGRAM, QD (DAXAS 500 MGX1))
  14. CETIRIZINE HYDROCHLORIDE [Suspect]
     Active Substance: CETIRIZINE HYDROCHLORIDE
     Dosage: 10 MILLIGRAM, QD (HEINIX 10 MGX1)
  15. DYMISTA [Suspect]
     Active Substance: AZELASTINE HYDROCHLORIDE\FLUTICASONE PROPIONATE
  16. TEZEPELUMAB [Suspect]
     Active Substance: TEZEPELUMAB
     Dates: start: 202403

REACTIONS (3)
  - Pneumonia [Unknown]
  - Adrenal insufficiency [Unknown]
  - Asthma [Recovered/Resolved]

NARRATIVE: CASE EVENT DATE: 20130101
